FAERS Safety Report 9251033 (Version 1)
Quarter: 2013Q2

REPORT INFORMATION
  Report Type: Report from Study
  Country: FR (occurrence: FR)
  Receive Date: 20130424
  Receipt Date: 20130424
  Transmission Date: 20140414
  Serious: Yes (Hospitalization)
  Sender: FDA-Public Use
  Company Number: FR-ASTELLAS-2013EU001679

PATIENT
  Age: 26 Year
  Sex: Female

DRUGS (7)
  1. ADVAGRAF [Suspect]
     Indication: RENAL TRANSPLANT
     Dosage: UNK
     Route: 048
     Dates: start: 20130109
  2. ADVAGRAF [Suspect]
     Indication: IMMUNOSUPPRESSION
  3. PROGRAF [Suspect]
     Indication: RENAL TRANSPLANT
     Dosage: UNK
     Route: 065
     Dates: start: 20121215, end: 20130108
  4. PROGRAF [Suspect]
     Indication: IMMUNOSUPPRESSION
  5. CELLCEPT /01275102/ [Suspect]
     Indication: RENAL TRANSPLANT
     Dosage: UNK
     Route: 065
     Dates: start: 20121215
  6. CELLCEPT /01275102/ [Suspect]
     Indication: PROPHYLAXIS AGAINST TRANSPLANT REJECTION
  7. SOLUPRED                           /00016201/ [Concomitant]
     Indication: IMMUNOSUPPRESSION
     Dosage: UNK
     Route: 065
     Dates: start: 20121215

REACTIONS (2)
  - Overdose [Recovered/Resolved]
  - Gastroenteritis [Recovered/Resolved]
